FAERS Safety Report 19047160 (Version 2)
Quarter: 2021Q2

REPORT INFORMATION
  Report Type: Report from Study
  Country: US (occurrence: US)
  Receive Date: 20210323
  Receipt Date: 20210616
  Transmission Date: 20210717
  Serious: Yes (Hospitalization)
  Sender: FDA-Public Use
  Company Number: US-ROCHE-2789660

PATIENT
  Age: 74 Year
  Sex: Male
  Weight: 67.7 kg

DRUGS (7)
  1. IBRUTINIB [Suspect]
     Active Substance: IBRUTINIB
     Indication: CHRONIC LYMPHOCYTIC LEUKAEMIA
     Dosage: FOR 15 CYCLES?DATE OF LAST DOSE ADMINISTERED: 20/DEC/2020
     Route: 048
     Dates: start: 20201103
  2. OXYGEN. [Concomitant]
     Active Substance: OXYGEN
     Dosage: 3L NC
  3. ZOSYN [Concomitant]
     Active Substance: PIPERACILLIN SODIUM\TAZOBACTAM SODIUM
     Route: 042
  4. REMDESIVIR. [Concomitant]
     Active Substance: REMDESIVIR
     Dosage: 4 DAYS TOTAL TREATMENT STARTING 21/DEC/2020
     Dates: start: 20201221
  5. TYLENOL [Concomitant]
     Active Substance: ACETAMINOPHEN
  6. OBINUTUZUMAB. [Suspect]
     Active Substance: OBINUTUZUMAB
     Indication: CHRONIC LYMPHOCYTIC LEUKAEMIA
     Dosage: 100 MG IV ON C1D1, 900 MG IV ON C1D2, 1000 MG IV ON C1D8 + C1D15, C2?6D1?DATE OF LAST DOSE ADMINISTE
     Route: 042
     Dates: start: 20201103, end: 20201201
  7. ELIQUIS [Concomitant]
     Active Substance: APIXABAN

REACTIONS (3)
  - COVID-19 [Recovering/Resolving]
  - Pyrexia [Recovering/Resolving]
  - Lymphocyte count decreased [Recovering/Resolving]

NARRATIVE: CASE EVENT DATE: 20201220
